FAERS Safety Report 17005400 (Version 1)
Quarter: 2019Q4

REPORT INFORMATION
  Report Type: Spontaneous
  Country: US (occurrence: US)
  Receive Date: 20191106
  Receipt Date: 20191106
  Transmission Date: 20200122
  Serious: Yes (Other)
  Sender: FDA-Public Use
  Company Number: None

PATIENT
  Age: 68 Year

DRUGS (1)
  1. TRETINOIN. [Suspect]
     Active Substance: TRETINOIN

REACTIONS (2)
  - Headache [None]
  - Chapped lips [None]

NARRATIVE: CASE EVENT DATE: 20191101
